FAERS Safety Report 7948937-0 (Version None)
Quarter: 2011Q4

REPORT INFORMATION
  Report Type: 
  Country: None (occurrence: None)
  Receive Date: 20111130
  Receipt Date: 20111122
  Transmission Date: 20120403
  Serious: Yes (Hospitalization)
  Sender: FDA-Public Use
  Company Number: GB-JNJFOC-20111109725

PATIENT
  Age: 19 Year
  Sex: Female

DRUGS (3)
  1. ALL OTHER THERAPEUTIC PRODUCTS [Concomitant]
     Indication: SEASONAL ALLERGY
     Route: 065
  2. NORGESTIMATE AND ETHINYL ESTRADIOL [Suspect]
     Indication: CONTRACEPTION
     Route: 065
  3. HORMONAL CONTRACEPTIVES FOR SYSTEMIC USE [Suspect]
     Indication: CONTRACEPTION
     Route: 015

REACTIONS (2)
  - HAEMORRHAGE [None]
  - OVARIAN CYST [None]
